FAERS Safety Report 18290981 (Version 3)
Quarter: 2020Q4

REPORT INFORMATION
  Report Type: Spontaneous
  Country: US (occurrence: US)
  Receive Date: 20200922
  Receipt Date: 20201117
  Transmission Date: 20210113
  Serious: No
  Sender: FDA-Public Use
  Company Number: US-AMGEN-USASP2020151728

PATIENT
  Age: 61 Year
  Sex: Female

DRUGS (20)
  1. CETRIZINE [Concomitant]
     Active Substance: CETIRIZINE HYDROCHLORIDE
  2. FEXOFENADINE [Concomitant]
     Active Substance: FEXOFENADINE HYDROCHLORIDE
  3. HYDROCORT [HYDROCORTISONE ACETATE] [Concomitant]
     Dosage: UNK
  4. MONTELUKAST [Concomitant]
     Active Substance: MONTELUKAST SODIUM
     Dosage: UNK
  5. HYDROXYZINE HCL [Concomitant]
     Active Substance: HYDROXYZINE HYDROCHLORIDE
  6. LISINOPRIL. [Concomitant]
     Active Substance: LISINOPRIL
     Dosage: UNK
  7. OMEGA-3 [DOCOSAHEXAENOIC ACID;EICOSAPENTAENOIC ACID] [Concomitant]
     Active Substance: DOCONEXENT\ICOSAPENT
     Dosage: UNK
  8. BUPROPION. [Concomitant]
     Active Substance: BUPROPION
  9. METHYLPRED [Concomitant]
     Active Substance: METHYLPREDNISOLONE
     Dosage: UNK
  10. NYSTATIN. [Concomitant]
     Active Substance: NYSTATIN
     Dosage: UNK
  11. NYSTOP [Concomitant]
     Active Substance: NYSTATIN
     Dosage: UNK
  12. VASCEPA [Concomitant]
     Active Substance: ICOSAPENT ETHYL
     Dosage: UNK
  13. PREDNISONE. [Concomitant]
     Active Substance: PREDNISONE
  14. BUPROPION HCL [Concomitant]
     Active Substance: BUPROPION HYDROCHLORIDE
     Dosage: UNK
  15. ALLOPURINOL. [Concomitant]
     Active Substance: ALLOPURINOL
     Dosage: UNK
  16. NALTREXONE [Concomitant]
     Active Substance: NALTREXONE
     Dosage: UNK
  17. OTEZLA [Suspect]
     Active Substance: APREMILAST
     Indication: PSORIASIS
     Dosage: 30 MILLIGRAM, BID
     Route: 048
     Dates: start: 20191105
  18. OTEZLA [Suspect]
     Active Substance: APREMILAST
     Indication: PSORIASIS
  19. CLOBETASOL [Concomitant]
     Active Substance: CLOBETASOL
     Dosage: UNK
  20. SAXENDA [Concomitant]
     Active Substance: LIRAGLUTIDE
     Dosage: UNK

REACTIONS (3)
  - Adverse drug reaction [Not Recovered/Not Resolved]
  - Psoriasis [Not Recovered/Not Resolved]
  - Urticaria [Not Recovered/Not Resolved]

NARRATIVE: CASE EVENT DATE: 20200819
